FAERS Safety Report 5193844-2 (Version None)
Quarter: 2006Q4

REPORT INFORMATION
  Report Type: 
  Country: None (occurrence: None)
  Receive Date: 20061222
  Receipt Date: 20061208
  Transmission Date: 20070319
  Serious: Yes (Other)
  Sender: FDA-Public Use
  Company Number: 2006150985

PATIENT
  Sex: Female
  Weight: 72.5755 kg

DRUGS (3)
  1. NAVANE [Suspect]
     Dosage: 15 MG (5  MG, 3 IN 1 D)    4 YEARS AGO
     Dates: start: 19670101
  2. NAVANE [Suspect]
     Dosage: 15 MG (5  MG, 3 IN 1 D)    4 YEARS AGO
     Dates: start: 19680101
  3. ATIVAN [Concomitant]

REACTIONS (5)
  - CONSTIPATION [None]
  - DRY MOUTH [None]
  - HEART RATE INCREASED [None]
  - HYPERTENSION [None]
  - SOMNOLENCE [None]
